FAERS Safety Report 9276766 (Version 3)
Quarter: 2015Q1

REPORT INFORMATION
  Report Type: Report from Study
  Country: US (occurrence: US)
  Receive Date: 20130507
  Receipt Date: 20150220
  Transmission Date: 20150721
  Serious: Yes (Hospitalization, Other)
  Sender: FDA-Public Use
  Company Number: US-ACTELION-A-US2013-82480

PATIENT
  Age: 51 Year
  Sex: Female

DRUGS (4)
  1. COUMADIN [Concomitant]
     Active Substance: WARFARIN SODIUM
  2. LETAIRIS [Concomitant]
     Active Substance: AMBRISENTAN
  3. VELETRI [Suspect]
     Active Substance: EPOPROSTENOL
     Indication: PULMONARY ARTERIAL HYPERTENSION
     Dosage: 20.2 NG/KG, PER MIN
     Route: 042
     Dates: start: 20100714
  4. ADCIRCA [Concomitant]
     Active Substance: TADALAFIL

REACTIONS (7)
  - Weight decreased [Unknown]
  - Gastrointestinal haemorrhage [Unknown]
  - Bronchitis [Unknown]
  - Platelet count decreased [Unknown]
  - Contusion [Unknown]
  - Tooth abscess [Unknown]
  - Cardiac failure congestive [Unknown]

NARRATIVE: CASE EVENT DATE: 20131226
